FAERS Safety Report 8300764-0 (Version None)
Quarter: 2012Q2

REPORT INFORMATION
  Report Type: 
  Country: None (occurrence: None)
  Receive Date: 20120420
  Receipt Date: 20120417
  Transmission Date: 20120825
  Serious: Yes (Death)
  Sender: FDA-Public Use
  Company Number: PHHY2012MX033028

PATIENT
  Sex: Male

DRUGS (12)
  1. GLIMEPIRIDE [Concomitant]
     Dosage: 2 DF,A DAY
  2. GLUCOBAY [Concomitant]
     Dosage: 3 DF, DAILY
  3. EUROCIN [Concomitant]
     Dosage: 0.25 MG, DAILY
  4. ROCALTROL [Concomitant]
  5. RANITIDINE [Concomitant]
  6. GALVUS MET [Suspect]
     Indication: DIABETES MELLITUS
     Dosage: 2 DF, (500/50 MG), DAILY
     Dates: start: 20110901, end: 20120404
  7. CILOSTAZOL [Concomitant]
     Dosage: 1 DF, A DAY
  8. TACROLIMUS [Concomitant]
     Dosage: 2 DF, A DAY
  9. INSULIN [Concomitant]
     Dosage: 18 IU, UNK
  10. CABARNIS [Concomitant]
  11. ZOLEDRONOC ACID [Suspect]
     Dosage: 5 MG, UNK
     Route: 042
     Dates: start: 20110801
  12. MYCOPHENOLIC ACID [Concomitant]
     Dosage: 1 DF, A DAY

REACTIONS (2)
  - CARDIAC DISORDER [None]
  - BLOOD GLUCOSE FLUCTUATION [None]
